FAERS Safety Report 6413051-2 (Version None)
Quarter: 2009Q4

REPORT INFORMATION
  Report Type: 
  Country: None (occurrence: None)
  Receive Date: 20091023
  Receipt Date: 20091023
  Transmission Date: 20100525
  Serious: Yes (Disabling)
  Sender: FDA-Public Use
  Company Number: None

PATIENT
  Age: 61 Year
  Sex: Female
  Weight: 81.6475 kg

DRUGS (3)
  1. LEVAQUIN [Suspect]
     Indication: RESPIRATORY TRACT INFECTION
     Dosage: 500 MG 1 TAB. PER DAY
     Dates: start: 20081026
  2. LEVAQUIN [Suspect]
     Indication: RESPIRATORY TRACT INFECTION
     Dosage: 500 MG 1 TAB. PER DAY
     Dates: start: 20081212
  3. LEVAQUIN [Suspect]
     Indication: RESPIRATORY TRACT INFECTION
     Dosage: 500 MG 1 TAB. PER DAY
     Dates: start: 20091001

REACTIONS (2)
  - PAIN IN EXTREMITY [None]
  - TENDON PAIN [None]
